FAERS Safety Report 9706484 (Version 1)
Quarter: 2013Q4

REPORT INFORMATION
  Report Type: Spontaneous
  Country: US (occurrence: US)
  Receive Date: 20131125
  Receipt Date: 20131125
  Transmission Date: 20140711
  Serious: No
  Sender: FDA-Public Use
  Company Number: US-B.I. PHARMACEUTICALS,INC./RIDGEFIELD-2013-BI-37168BP

PATIENT
  Age: 79 Year
  Sex: Female
  Weight: 77 kg

DRUGS (10)
  1. SPIRIVA [Suspect]
     Indication: CHRONIC OBSTRUCTIVE PULMONARY DISEASE
     Dosage: 18 MCG
     Route: 055
     Dates: start: 20131105
  2. SYNTHROID [Concomitant]
     Indication: HYPOTHYROIDISM
     Dosage: 150 MCG
     Route: 048
  3. ZESTRIL [Concomitant]
     Indication: HYPERTENSION
     Dosage: 40 MG
     Route: 048
  4. COUMADIN [Concomitant]
     Indication: ATRIAL FIBRILLATION
     Dosage: 1 ANZ
     Route: 048
  5. VERAPAMIL [Concomitant]
     Indication: HYPERTENSION
     Dosage: 250 MG
     Route: 048
  6. MUCINEX [Concomitant]
     Indication: ASTHMA
     Dosage: 2 ANZ
     Route: 048
  7. MUCINEX [Concomitant]
     Indication: SEASONAL ALLERGY
  8. PREDNISONE [Concomitant]
     Indication: ASTHMA
     Dosage: 20 MG
     Route: 048
     Dates: start: 20131022
  9. HYDROCHLOROTHIAZIDE [Concomitant]
     Indication: HYPERTENSION
     Dosage: 12.5 MG
     Route: 048
  10. ADVAIR [Concomitant]
     Indication: CHRONIC OBSTRUCTIVE PULMONARY DISEASE
     Dosage: STRENGTH: 500MCG / 50 MCG; DAILY DOSE: 1000 MCG / 100 MCG
     Route: 055

REACTIONS (2)
  - Dyspepsia [Not Recovered/Not Resolved]
  - Product taste abnormal [Not Recovered/Not Resolved]
